FAERS Safety Report 19215926 (Version 1)
Quarter: 2021Q2

REPORT INFORMATION
  Report Type: Spontaneous
  Country: US (occurrence: US)
  Receive Date: 20210505
  Receipt Date: 20210505
  Transmission Date: 20210717
  Serious: No
  Sender: FDA-Public Use
  Company Number: US-CELGENEUS-USA-20210405613

PATIENT
  Sex: Female
  Weight: 72.64 kg

DRUGS (1)
  1. REVLIMID [Suspect]
     Active Substance: LENALIDOMIDE
     Indication: PLASMA CELL MYELOMA
     Dosage: 25 MILLIGRAM
     Route: 048
     Dates: start: 20190522

REACTIONS (6)
  - Paraesthesia [Unknown]
  - Sinusitis [Unknown]
  - Fatigue [Not Recovered/Not Resolved]
  - Platelet count decreased [Recovered/Resolved]
  - Asthenia [Unknown]
  - Contusion [Recovered/Resolved]
